FAERS Safety Report 9261519 (Version 1)
Quarter: 2013Q2

REPORT INFORMATION
  Report Type: Spontaneous
  Country: GB (occurrence: GB)
  Receive Date: 20130429
  Receipt Date: 20130429
  Transmission Date: 20140414
  Serious: Yes (Other)
  Sender: FDA-Public Use
  Company Number: PHHY2013GB039541

PATIENT
  Age: 60 Year
  Sex: Male
  Weight: 66.9 kg

DRUGS (4)
  1. OLANZAPINE [Suspect]
     Indication: PSYCHOTIC DISORDER
     Dosage: 10 MG
     Route: 048
     Dates: start: 20121221, end: 20121230
  2. OLANZAPINE [Suspect]
     Dosage: 15 MG
     Route: 048
     Dates: start: 20121231, end: 20130102
  3. OLANZAPINE [Suspect]
     Dosage: 20 MG
     Route: 048
     Dates: start: 20130103, end: 20130114
  4. CLOZAPINE [Concomitant]

REACTIONS (1)
  - Hyponatraemia [Recovered/Resolved]
